FAERS Safety Report 6836251-6 (Version None)
Quarter: 2010Q2

REPORT INFORMATION
  Report Type: 
  Country: None (occurrence: None)
  Receive Date: 20100624
  Receipt Date: 20100326
  Transmission Date: 20101027
  Serious: No
  Sender: FDA-Public Use
  Company Number: DKLU1060577

PATIENT
  Age: 11 Year
  Sex: Male

DRUGS (3)
  1. SABRIL [Suspect]
     Indication: TUBEROUS SCLEROSIS
     Dosage: 1000 MG MILLIGRAM(S), 2 IN 1 D, OTHER
     Dates: start: 20000101
  2. DEPAKOTE [Concomitant]
  3. DEPAKOTE [Concomitant]

REACTIONS (1)
  - FEAR [None]
